FAERS Safety Report 5060905-8 (Version None)
Quarter: 2006Q2

REPORT INFORMATION
  Report Type: 
  Country: None (occurrence: None)
  Receive Date: 20060630
  Receipt Date: 20051027
  Transmission Date: 20061013
  Serious: Yes (Other)
  Sender: FDA-Public Use
  Company Number: 2005133016

PATIENT
  Age: 53 Year
  Sex: Female
  Weight: 79.8331 kg

DRUGS (5)
  1. NICOTROL [Suspect]
     Indication: SMOKING CESSATION THERAPY
     Dosage: 3 CARTRIDGES DAILY, INHALATION
     Route: 055
     Dates: start: 20040401
  2. HYDROCODONE (HYDROCODONE) [Concomitant]
  3. DIAZEPAM [Concomitant]
  4. ASPIRIN [Concomitant]
  5. ANTIHYPERTENSIVES (ANTIHYPERTENSIVES) [Concomitant]

REACTIONS (2)
  - DEPENDENCE [None]
  - MEDICATION ERROR [None]
